FAERS Safety Report 14468154 (Version 1)
Quarter: 2018Q1

REPORT INFORMATION
  Report Type: Spontaneous
  Country: US (occurrence: US)
  Receive Date: 20180131
  Receipt Date: 20180131
  Transmission Date: 20180509
  Serious: No
  Sender: FDA-Public Use
  Company Number: US-PFIZER INC-2018033306

PATIENT

DRUGS (1)
  1. DAPTOMYCIN. [Suspect]
     Active Substance: DAPTOMYCIN
     Dosage: UNK

REACTIONS (2)
  - Chills [Unknown]
  - Headache [Unknown]
